FAERS Safety Report 18791420 (Version 2)
Quarter: 2021Q1

REPORT INFORMATION
  Report Type: Spontaneous
  Country: JP (occurrence: JP)
  Receive Date: 20210126
  Receipt Date: 20210222
  Transmission Date: 20210419
  Serious: Yes (Death, Other)
  Sender: FDA-Public Use
  Company Number: JP-GILEAD-2021-0514255

PATIENT
  Age: 64 Year
  Sex: Male
  Weight: 63 kg

DRUGS (5)
  1. VEKLURY [Suspect]
     Active Substance: REMDESIVIR
     Indication: PRODUCT USED FOR UNKNOWN INDICATION
     Dosage: UNK
     Route: 065
     Dates: start: 20210115
  2. FIRSTCIN [Concomitant]
     Active Substance: CEFOZOPRAN HYDROCHLORIDE
     Dosage: UNK
     Route: 065
     Dates: start: 20210110
  3. DECADRON (DEXAMETHASONE SODIUM PHOSPHATE) [Concomitant]
     Active Substance: DEXAMETHASONE SODIUM PHOSPHATE
     Dosage: UNK
     Route: 065
     Dates: start: 20210109
  4. GASTER [Concomitant]
     Active Substance: FAMOTIDINE
     Dosage: UNK
     Route: 065
     Dates: start: 20210109
  5. AVIGAN [Concomitant]
     Active Substance: FAVIPIRAVIR
     Dosage: UNK
     Route: 065
     Dates: start: 20210109

REACTIONS (1)
  - COVID-19 [Fatal]

NARRATIVE: CASE EVENT DATE: 20210118
